FAERS Safety Report 9158455 (Version 1)
Quarter: 2013Q1

REPORT INFORMATION
  Report Type: Spontaneous
  Country: KR (occurrence: KR)
  Receive Date: 20130312
  Receipt Date: 20130312
  Transmission Date: 20140127
  Serious: Yes (Other)
  Sender: FDA-Public Use
  Company Number: KR-CELGENEUS-286-50794-13024323

PATIENT
  Sex: 0

DRUGS (2)
  1. VIDAZA [Suspect]
     Indication: MYELODYSPLASTIC SYNDROME
     Dosage: 75 MILLIGRAM/SQ. METER
     Route: 058
  2. DECITABINE [Concomitant]
     Indication: MYELODYSPLASTIC SYNDROME
     Dosage: 20 MILLIGRAM/SQ. METER
     Route: 041

REACTIONS (6)
  - Haemorrhage [Unknown]
  - Neutropenic infection [Unknown]
  - Anaemia [Unknown]
  - Neutropenia [Unknown]
  - Thrombocytopenia [Unknown]
  - Pyrexia [Unknown]
